FAERS Safety Report 9361003 (Version 1)
Quarter: 2013Q2

REPORT INFORMATION
  Report Type: Spontaneous
  Country: US (occurrence: None)
  Receive Date: 20130620
  Receipt Date: 20130620
  Transmission Date: 20140414
  Serious: Yes (Hospitalization)
  Sender: FDA-Public Use
  Company Number: None

PATIENT
  Age: 52 Year
  Sex: Female
  Weight: 83.92 kg

DRUGS (2)
  1. OPANA ER [Suspect]
     Indication: PAIN
     Dates: start: 201211, end: 201303
  2. OPANA ER [Suspect]
     Indication: FIBROMYALGIA
     Dates: start: 201211, end: 201303

REACTIONS (6)
  - Depression [None]
  - Pneumonia [None]
  - Infection [None]
  - Sepsis [None]
  - Cardiac disorder [None]
  - Weight decreased [None]
